FAERS Safety Report 5509985-3 (Version None)
Quarter: 2007Q4

REPORT INFORMATION
  Report Type: 
  Country: None (occurrence: None)
  Receive Date: 20071107
  Receipt Date: 20071107
  Transmission Date: 20080405
  Serious: Yes (Hospitalization)
  Sender: FDA-Public Use
  Company Number: None

PATIENT
  Sex: Female
  Weight: 89.1 kg

DRUGS (2)
  1. BUSULFAN 60 MG/10ML AMPULES [Suspect]
     Indication: MYELOID LEUKAEMIA
     Dosage: .08 MG/KG -56.5 MG- Q 8 H FPR 16 DOSES IV BOLUS
     Route: 040
     Dates: start: 20070817, end: 20070821
  2. CLOFARABINE 20 ML VIAL GENZYME [Suspect]
     Indication: MYELOID LEUKAEMIA
     Dosage: 30 MG/M2 -54 MG- DAILY IV BOLUS
     Route: 040
     Dates: start: 20070818, end: 20070822

REACTIONS (19)
  - ABDOMINAL PAIN UPPER [None]
  - ALANINE AMINOTRANSFERASE ABNORMAL [None]
  - AMMONIA INCREASED [None]
  - ANOREXIA [None]
  - ASCITES [None]
  - ASPARTATE AMINOTRANSFERASE ABNORMAL [None]
  - BLOOD BILIRUBIN INCREASED [None]
  - CONFUSIONAL STATE [None]
  - GASTRITIS [None]
  - GRAFT VERSUS HOST DISEASE [None]
  - HEPATIC ENZYME INCREASED [None]
  - NAUSEA [None]
  - OEDEMA PERIPHERAL [None]
  - ORAL INTAKE REDUCED [None]
  - PLEURAL EFFUSION [None]
  - THROMBOCYTOPENIA [None]
  - THROMBOTIC THROMBOCYTOPENIC PURPURA [None]
  - VENOOCCLUSIVE LIVER DISEASE [None]
  - VOMITING [None]
